FAERS Safety Report 4907770-4 (Version None)
Quarter: 2006Q1

REPORT INFORMATION
  Report Type: 
  Country: None (occurrence: None)
  Receive Date: 20060210
  Receipt Date: 20060130
  Transmission Date: 20060701
  Serious: Yes (Other)
  Sender: FDA-Public Use
  Company Number: US-BRISTOL-MYERS SQUIBB COMPANY-13264189

PATIENT
  Age: 88 Year
  Sex: Male

DRUGS (2)
  1. WARFARIN SODIUM [Suspect]
     Indication: AORTIC VALVE REPLACEMENT
     Dosage: DOSE = 3.5 - 4 MG/DAY
  2. GATIFLOXACIN [Interacting]
     Indication: PNEUMONIA
     Route: 048

REACTIONS (3)
  - DRUG INTERACTION [None]
  - PNEUMONIA [None]
  - PROTHROMBIN TIME PROLONGED [None]
